FAERS Safety Report 7584209-4 (Version None)
Quarter: 2011Q2

REPORT INFORMATION
  Report Type: 
  Country: None (occurrence: None)
  Receive Date: 20110623
  Receipt Date: 20110621
  Transmission Date: 20111010
  Serious: Yes (Disabling)
  Sender: FDA-Public Use
  Company Number: SP03678

PATIENT
  Age: 50 Year
  Sex: Male
  Weight: 98.8842 kg

DRUGS (6)
  1. XIFAXAN [Suspect]
     Indication: HEPATIC ENCEPHALOPATHY
     Dosage: ORAL
     Route: 048
     Dates: start: 20110401
  2. LACTULOSE [Concomitant]
  3. FUROSEMIDE [Concomitant]
  4. ANXIETY MEDICATION [Concomitant]
  5. MULTI-VITAMIN [Concomitant]
  6. METOPROLOL TARTRATE [Concomitant]

REACTIONS (4)
  - FLUID RETENTION [None]
  - SOMNOLENCE [None]
  - OEDEMA PERIPHERAL [None]
  - AMMONIA INCREASED [None]
